FAERS Safety Report 8849055 (Version 1)
Quarter: 2012Q4

REPORT INFORMATION
  Report Type: Spontaneous
  Country: US (occurrence: None)
  Receive Date: 20121016
  Receipt Date: 20121016
  Transmission Date: 20130627
  Serious: Yes (Disabling)
  Sender: FDA-Public Use
  Company Number: None

PATIENT
  Age: 56 Year
  Sex: Female
  Weight: 63.5 kg

DRUGS (1)
  1. OLOPATADINE [Suspect]
     Indication: SEASONAL ALLERGIC RHINITIS
     Dosage: 2 spray in each postril
     Route: 045
     Dates: start: 20121001, end: 20121006

REACTIONS (1)
  - Anosmia [None]
